FAERS Safety Report 16499671 (Version 1)
Quarter: 2019Q3

REPORT INFORMATION
  Report Type: Spontaneous
  Country: SE (occurrence: SE)
  Receive Date: 20190701
  Receipt Date: 20190701
  Transmission Date: 20191004
  Serious: Yes (Hospitalization)
  Sender: FDA-Public Use
  Company Number: SE-TEVA-2019-SE-1070270

PATIENT
  Age: 36 Year
  Sex: Male

DRUGS (1)
  1. QUETIAPINE. [Suspect]
     Active Substance: QUETIAPINE
     Indication: INTENTIONAL OVERDOSE
     Dosage: TOOK 200 SLOW-RELEASE TABLETS OF QUETIAPINE 400MG (~80G)
     Route: 065

REACTIONS (2)
  - Intentional overdose [Recovering/Resolving]
  - Bezoar [Recovering/Resolving]
